FAERS Safety Report 9916520 (Version 7)
Quarter: 2014Q2

REPORT INFORMATION
  Report Type: Spontaneous
  Country: US (occurrence: US)
  Receive Date: 20140221
  Receipt Date: 20140610
  Transmission Date: 20141212
  Serious: Yes (Hospitalization, Other)
  Sender: FDA-Public Use
  Company Number: US-009507513-1108USA00023

PATIENT
  Sex: Female
  Weight: 61.68 kg

DRUGS (5)
  1. FOSAMAX [Suspect]
     Indication: OSTEOPOROSIS
     Dosage: 70 MG, UNK
     Route: 048
     Dates: end: 200608
  2. FOSAMAX [Suspect]
     Dosage: 10 MG, QD
  3. ZANTAC [Concomitant]
     Dosage: UNK
     Dates: start: 1995
  4. DARVOCET-N [Concomitant]
     Dosage: UNK
     Dates: start: 1995
  5. CODEINE [Concomitant]
     Dosage: UNK
     Dates: start: 1995

REACTIONS (114)
  - Hip arthroplasty [Unknown]
  - Large intestine perforation [Unknown]
  - Spinal fusion surgery [Unknown]
  - Medical device removal [Unknown]
  - Open reduction of fracture [Unknown]
  - Urinary tract infection [Unknown]
  - Iron deficiency anaemia [Unknown]
  - Peripheral artery bypass [Unknown]
  - Colectomy [Unknown]
  - Wound drainage [Unknown]
  - Humerus fracture [Unknown]
  - Bone graft [Unknown]
  - Bone graft [Unknown]
  - Shoulder arthroplasty [Unknown]
  - Shoulder arthroplasty [Unknown]
  - Shoulder arthroplasty [Unknown]
  - Hip arthroplasty [Unknown]
  - Clostridium difficile infection [Unknown]
  - Sequestrectomy [Unknown]
  - Sequestrectomy [Unknown]
  - Shoulder arthroplasty [Unknown]
  - Shoulder arthroplasty [Unknown]
  - Shoulder arthroplasty [Unknown]
  - Spinal fusion surgery [Unknown]
  - Osteonecrosis [Not Recovered/Not Resolved]
  - Diarrhoea [Recovering/Resolving]
  - Osteonecrosis of jaw [Unknown]
  - Upper limb fracture [Unknown]
  - Anxiety [Unknown]
  - Incisional drainage [Unknown]
  - Emotional distress [Unknown]
  - Hypertension [Unknown]
  - Rheumatoid arthritis [Unknown]
  - Oral infection [Unknown]
  - Impaired healing [Unknown]
  - Alveoloplasty [Unknown]
  - Impaired healing [Unknown]
  - Fistula discharge [Unknown]
  - Hypoaesthesia [Unknown]
  - Paraesthesia [Unknown]
  - Trismus [Unknown]
  - Tooth disorder [Unknown]
  - Incontinence [Unknown]
  - Osteopenia [Unknown]
  - Fall [Unknown]
  - Joint dislocation [Unknown]
  - Rotator cuff syndrome [Unknown]
  - Thyroid disorder [Unknown]
  - Onychomycosis [Unknown]
  - Ilium fracture [Unknown]
  - Cataract operation [Unknown]
  - Primary sequestrum [Unknown]
  - Hypertension [Unknown]
  - Bursitis [Unknown]
  - Osteoarthritis [Unknown]
  - Osteoarthritis [Unknown]
  - Depression [Unknown]
  - Peripheral vascular disorder [Unknown]
  - Neuropathy peripheral [Unknown]
  - Hyperlipidaemia [Unknown]
  - Fall [Unknown]
  - Jaw fracture [Unknown]
  - Tooth loss [Unknown]
  - Alveoloplasty [Unknown]
  - Tooth disorder [Unknown]
  - Carotid artery stenosis [Unknown]
  - Fatigue [Unknown]
  - Aortic aneurysm [Unknown]
  - Upper limb fracture [Recovered/Resolved]
  - Traumatic arthropathy [Unknown]
  - Lung disorder [Unknown]
  - Sleep apnoea syndrome [Unknown]
  - Cervical spinal stenosis [Unknown]
  - Impaired healing [Unknown]
  - Loose tooth [Unknown]
  - Loose tooth [Unknown]
  - Loose tooth [Unknown]
  - Bone operation [Unknown]
  - Bone operation [Unknown]
  - Dental caries [Unknown]
  - Tooth loss [Unknown]
  - Pain [Unknown]
  - Tooth extraction [Unknown]
  - Tremor [Unknown]
  - Bursitis [Unknown]
  - Endodontic procedure [Unknown]
  - Infection [Recovered/Resolved]
  - Fall [Unknown]
  - Pain [Unknown]
  - Primary sequestrum [Unknown]
  - Oral infection [Unknown]
  - Incisional drainage [Unknown]
  - Debridement [Unknown]
  - Oral cavity fistula [Unknown]
  - Oral cavity fistula [Unknown]
  - Oral cavity fistula [Unknown]
  - Pseudomembranous colitis [Unknown]
  - Pathological fracture [Unknown]
  - Cervical vertebral fracture [Unknown]
  - Leukoplakia oral [Unknown]
  - Fungal infection [Unknown]
  - Bone lesion [Unknown]
  - Fracture nonunion [Unknown]
  - Nocturia [Unknown]
  - Osteomyelitis [Unknown]
  - Diarrhoea [Recovering/Resolving]
  - Diarrhoea [Recovering/Resolving]
  - Mouth ulceration [Unknown]
  - Muscle spasms [Unknown]
  - Abdominal discomfort [Unknown]
  - Dizziness [Unknown]
  - Drug ineffective [Unknown]
  - Gastrooesophageal reflux disease [Unknown]
  - Drug ineffective [Unknown]
